FAERS Safety Report 14855300 (Version 1)
Quarter: 2018Q2

REPORT INFORMATION
  Report Type: Spontaneous
  Country: US (occurrence: US)
  Receive Date: 20180507
  Receipt Date: 20180507
  Transmission Date: 20180711
  Serious: No
  Sender: FDA-Public Use
  Company Number: US-ROCHE-1965467

PATIENT

DRUGS (2)
  1. ESBRIET [Suspect]
     Active Substance: PIRFENIDONE
     Dosage: 1 PILL THRICE A DAY
     Route: 048
     Dates: start: 201704, end: 201704
  2. ESBRIET [Suspect]
     Active Substance: PIRFENIDONE
     Indication: IDIOPATHIC PULMONARY FIBROSIS
     Dosage: 1 PILL THRICE A DAY
     Route: 048
     Dates: end: 201701

REACTIONS (2)
  - Pulmonary function test decreased [Unknown]
  - Pruritus [Unknown]
